FAERS Safety Report 15344119 (Version 2)
Quarter: 2018Q4

REPORT INFORMATION
  Report Type: Spontaneous
  Country: FR (occurrence: FR)
  Receive Date: 20180903
  Receipt Date: 20181012
  Transmission Date: 20190204
  Serious: Yes (Life-Threatening)
  Sender: FDA-Public Use
  Company Number: FR-ROCHE-2179282

PATIENT
  Age: 47 Year
  Sex: Male

DRUGS (14)
  1. OXALIPLATINE [Suspect]
     Active Substance: OXALIPLATIN
     Indication: FOLLICLE CENTRE LYMPHOMA, FOLLICULAR GRADE I, II, III STAGE IV
     Dosage: 100 MG/M2
     Route: 042
     Dates: start: 201409, end: 201410
  2. CYCLOPHOSPHAMIDE. [Suspect]
     Active Substance: CYCLOPHOSPHAMIDE
     Indication: FOLLICLE CENTRE LYMPHOMA, FOLLICULAR GRADE I, II, III STAGE IV
     Dosage: 600 MG/M2, QD
     Route: 042
     Dates: start: 2000, end: 2001
  3. MABTHERA [Suspect]
     Active Substance: RITUXIMAB
     Indication: FOLLICLE CENTRE LYMPHOMA, FOLLICULAR GRADE I, II, III STAGE IV
     Dosage: 375 MG/M2
     Route: 042
     Dates: start: 201309, end: 201402
  4. CYTARABINE. [Suspect]
     Active Substance: CYTARABINE
     Indication: FOLLICLE CENTRE LYMPHOMA, FOLLICULAR GRADE I, II, III STAGE IV
     Dosage: 200 UNK
     Route: 042
     Dates: start: 20141114, end: 20141117
  5. CYTARABINE. [Suspect]
     Active Substance: CYTARABINE
     Dosage: 200 MG/M2, QD
     Route: 042
     Dates: start: 201409, end: 201410
  6. ETOPOSIDE. [Suspect]
     Active Substance: ETOPOSIDE
     Indication: FOLLICLE CENTRE LYMPHOMA, FOLLICULAR GRADE I, II, III STAGE IV
     Dosage: 200 MG/M2, QD
     Route: 042
     Dates: start: 20141114, end: 20171117
  7. ETOPOSIDE. [Suspect]
     Active Substance: ETOPOSIDE
     Dosage: 100 MG/M2
     Route: 042
     Dates: start: 2000, end: 2001
  8. DOXORUBICINE [Suspect]
     Active Substance: DOXORUBICIN
     Indication: FOLLICLE CENTRE LYMPHOMA, FOLLICULAR GRADE I, II, III STAGE IV
     Dosage: 25 MG/M2, QD
     Route: 042
     Dates: start: 2000, end: 2001
  9. BENDAMUSTINE [Suspect]
     Active Substance: BENDAMUSTINE
     Indication: FOLLICLE CENTRE LYMPHOMA, FOLLICULAR GRADE I, II, III STAGE IV
     Dosage: 70 MG/M2
     Route: 042
     Dates: start: 201309, end: 201402
  10. MABTHERA [Suspect]
     Active Substance: RITUXIMAB
     Dosage: 375 MG/M2
     Route: 042
     Dates: start: 201409, end: 201410
  11. INTRON A [Suspect]
     Active Substance: INTERFERON ALFA-2B
     Indication: FOLLICLE CENTRE LYMPHOMA, FOLLICULAR GRADE I, II, III STAGE IV
     Dosage: 5 MUI X 3 PAR SEMAINE
     Route: 058
     Dates: start: 2000, end: 2001
  12. CYTARABINE. [Suspect]
     Active Substance: CYTARABINE
     Dosage: 200 MG/KG
     Route: 042
  13. MELPHALAN. [Suspect]
     Active Substance: MELPHALAN
     Indication: FOLLICLE CENTRE LYMPHOMA, FOLLICULAR GRADE I, II, III STAGE IV
     Dosage: 140 MG/M2
     Route: 042
     Dates: start: 20141118, end: 20141118
  14. CARMUSTINE. [Suspect]
     Active Substance: CARMUSTINE
     Indication: FOLLICLE CENTRE LYMPHOMA, FOLLICULAR GRADE I, II, III STAGE IV
     Route: 042
     Dates: start: 20141113, end: 20141113

REACTIONS (3)
  - Myelodysplastic syndrome [Not Recovered/Not Resolved]
  - Off label use [Unknown]
  - Intentional product use issue [Unknown]

NARRATIVE: CASE EVENT DATE: 201808
